FAERS Safety Report 6858689-3 (Version None)
Quarter: 2010Q3

REPORT INFORMATION
  Report Type: 
  Country: None (occurrence: None)
  Receive Date: 20100719
  Receipt Date: 20080209
  Transmission Date: 20110219
  Serious: No
  Sender: FDA-Public Use
  Company Number: US-PFIZER INC-2008014295

PATIENT
  Sex: Male
  Weight: 95.3 kg

DRUGS (3)
  1. CHANTIX [Suspect]
     Indication: SMOKING CESSATION THERAPY
     Dates: start: 20080101
  2. ARICEPT [Interacting]
     Indication: NERVOUS SYSTEM DISORDER
  3. PROZAC [Interacting]
     Indication: DEPRESSION

REACTIONS (4)
  - AGGRESSION [None]
  - ANGER [None]
  - DRUG INTERACTION [None]
  - PERSONALITY DISORDER [None]
